FAERS Safety Report 9267190 (Version 3)
Quarter: 2013Q3

REPORT INFORMATION
  Report Type: Spontaneous
  Country: IE (occurrence: IE)
  Receive Date: 20130502
  Receipt Date: 20130719
  Transmission Date: 20140515
  Serious: Yes (Hospitalization)
  Sender: FDA-Public Use
  Company Number: PHFR2013IE002487

PATIENT
  Sex: Male

DRUGS (2)
  1. CLOZARIL [Suspect]
     Indication: SCHIZOPHRENIA
     Dosage: UNK
     Route: 048
     Dates: start: 20090508, end: 20130501
  2. CLOZARIL [Suspect]
     Dosage: UNK

REACTIONS (2)
  - Drug abuse [Unknown]
  - Poisoning [Unknown]
